FAERS Safety Report 8073637-9 (Version None)
Quarter: 2012Q1

REPORT INFORMATION
  Report Type: 
  Country: None (occurrence: None)
  Receive Date: 20120126
  Receipt Date: 20120125
  Transmission Date: 20120608
  Serious: Yes (Death)
  Sender: FDA-Public Use
  Company Number: TR-PFIZER INC-2012015405

PATIENT
  Age: 79 Year
  Sex: Male

DRUGS (4)
  1. SERTRALINE HYDROCHLORIDE [Concomitant]
     Dosage: 100 MG, 2X/DAY
     Route: 048
     Dates: end: 20111208
  2. ZYVOX [Suspect]
     Dosage: 600 MG, 2X/DAY
     Route: 042
     Dates: start: 20111102, end: 20111205
  3. REMERON [Concomitant]
     Dosage: UNK
     Dates: end: 20111206
  4. FOLIC ACID [Concomitant]
     Dosage: UNK
     Route: 048
     Dates: end: 20111230

REACTIONS (2)
  - RENAL FAILURE ACUTE [None]
  - HEPATITIS TOXIC [None]
